FAERS Safety Report 21917985 (Version 3)
Quarter: 2023Q1

REPORT INFORMATION
  Report Type: Report from Study
  Country: US (occurrence: US)
  Receive Date: 20230127
  Receipt Date: 20230301
  Transmission Date: 20230418
  Serious: Yes (Hospitalization)
  Sender: FDA-Public Use
  Company Number: US-GBT-019560

PATIENT
  Age: 29 Year
  Sex: Male

DRUGS (4)
  1. OXBRYTA [Suspect]
     Active Substance: VOXELOTOR
     Indication: Haemolysis
     Route: 048
     Dates: start: 20210424, end: 20221209
  2. OXYCODONE [Concomitant]
     Active Substance: OXYCODONE
     Indication: Sickle cell disease
     Route: 048
     Dates: start: 20181219
  3. DULOXETINE [Concomitant]
     Active Substance: DULOXETINE
     Indication: Sickle cell disease
     Route: 048
     Dates: start: 20221019
  4. NAPROXEN [Concomitant]
     Active Substance: NAPROXEN
     Indication: Sickle cell disease
     Route: 048
     Dates: start: 20220919

REACTIONS (2)
  - Acute chest syndrome [Recovered/Resolved]
  - Sickle cell anaemia with crisis [Recovered/Resolved]

NARRATIVE: CASE EVENT DATE: 20221209
